FAERS Safety Report 15107393 (Version 2)
Quarter: 2018Q4

REPORT INFORMATION
  Report Type: Report from Study
  Country: DE (occurrence: DE)
  Receive Date: 20180704
  Receipt Date: 20181001
  Transmission Date: 20190204
  Serious: Yes (Other)
  Sender: FDA-Public Use
  Company Number: DE-PFIZER INC-2018262983

PATIENT
  Age: 59 Year
  Sex: Female
  Weight: 95 kg

DRUGS (19)
  1. PACLITAXEL. [Suspect]
     Active Substance: PACLITAXEL
     Dosage: 177 MG, WEEKLY
     Route: 042
     Dates: start: 20160315
  2. PACLITAXEL. [Suspect]
     Active Substance: PACLITAXEL
     Dosage: 176 MG, UNK
     Route: 042
     Dates: start: 20160524
  3. L-THYROXIN [Concomitant]
     Active Substance: LEVOTHYROXINE SODIUM
     Dosage: 125 UG, UNK
     Route: 048
     Dates: start: 20160608
  4. PACLITAXEL. [Suspect]
     Active Substance: PACLITAXEL
     Dosage: 176 MG, UNK
     Route: 042
     Dates: start: 20160503
  5. PACLITAXEL. [Suspect]
     Active Substance: PACLITAXEL
     Dosage: 176 MG, UNK
     Route: 042
     Dates: start: 20160426
  6. BEVACIZUMAB. [Suspect]
     Active Substance: BEVACIZUMAB
     Indication: BREAST CANCER
     Dosage: 950 MG, 2X/WEEK
     Route: 042
     Dates: start: 20160308, end: 20160308
  7. VERGENTAN [Concomitant]
     Active Substance: ALIZAPRIDE HYDROCHLORIDE
     Indication: NAUSEA
     Dosage: 50 MG, WITH CHEMOTHERAPY
     Route: 048
     Dates: start: 20160304
  8. PACLITAXEL. [Suspect]
     Active Substance: PACLITAXEL
     Dosage: 177 MG, WEEKLY
     Route: 042
     Dates: start: 20160308
  9. PACLITAXEL. [Suspect]
     Active Substance: PACLITAXEL
     Dosage: 195 MG, WEEKLY
     Route: 042
     Dates: start: 20160229, end: 20160229
  10. PACLITAXEL. [Suspect]
     Active Substance: PACLITAXEL
     Dosage: 910 MG, UNK
     Route: 042
     Dates: start: 20160607
  11. BEVACIZUMAB. [Suspect]
     Active Substance: BEVACIZUMAB
     Dosage: 910 MG, UNK
     Route: 042
     Dates: start: 20160607, end: 20160607
  12. PACLITAXEL. [Suspect]
     Active Substance: PACLITAXEL
     Dosage: 176 MG, UNK
     Route: 042
     Dates: start: 20160607, end: 20160607
  13. PACLITAXEL. [Suspect]
     Active Substance: PACLITAXEL
     Indication: BREAST CANCER
     Dosage: 176 MG, UNK
     Route: 042
     Dates: start: 20160531
  14. PACLITAXEL. [Suspect]
     Active Substance: PACLITAXEL
     Dosage: 175 MG, WEEKLY
     Route: 042
     Dates: start: 20160412
  15. PACLITAXEL. [Suspect]
     Active Substance: PACLITAXEL
     Dosage: 176 MG, UNK
     Route: 042
     Dates: start: 20160510
  16. BEVACIZUMAB. [Suspect]
     Active Substance: BEVACIZUMAB
     Dosage: 176 MG, UNK
     Route: 042
     Dates: start: 20160607, end: 20160607
  17. GRANISETRON [Concomitant]
     Active Substance: GRANISETRON
     Indication: NAUSEA
     Dosage: 2 MG, WITH CHEMOTHERAPY
     Route: 048
     Dates: start: 20160304
  18. PACLITAXEL. [Suspect]
     Active Substance: PACLITAXEL
     Dosage: 175 MG, WEEKLY
     Route: 042
     Dates: start: 20160322
  19. PACLITAXEL. [Suspect]
     Active Substance: PACLITAXEL
     Dosage: 175 MG, WEEKLY
     Route: 042
     Dates: start: 20160405

REACTIONS (10)
  - Condition aggravated [Recovering/Resolving]
  - Asthenia [Recovering/Resolving]
  - Alopecia [Recovering/Resolving]
  - Nausea [Recovering/Resolving]
  - Interstitial lung disease [Recovered/Resolved]
  - Ageusia [Recovering/Resolving]
  - Decreased appetite [Recovering/Resolving]
  - Cough [Recovered/Resolved]
  - Oropharyngeal pain [Recovered/Resolved]
  - Peripheral sensory neuropathy [Recovering/Resolving]

NARRATIVE: CASE EVENT DATE: 20160607
